FAERS Safety Report 10578719 (Version 1)
Quarter: 2014Q4

REPORT INFORMATION
  Report Type: Spontaneous
  Country: FR (occurrence: FR)
  Receive Date: 20141112
  Receipt Date: 20141112
  Transmission Date: 20150529
  Serious: Yes (Hospitalization, Other)
  Sender: FDA-Public Use
  Company Number: FR-ELI_LILLY_AND_COMPANY-FR201410012261

PATIENT
  Age: 52 Year
  Sex: Female

DRUGS (4)
  1. GEMZAR [Suspect]
     Active Substance: GEMCITABINE HYDROCHLORIDE
     Dosage: 1200 MG, CYCLICAL
     Route: 042
     Dates: start: 20140828
  2. CARBOPLATINE [Suspect]
     Active Substance: CARBOPLATIN
     Indication: BREAST CANCER METASTATIC
     Route: 065
  3. GEMZAR [Suspect]
     Active Substance: GEMCITABINE HYDROCHLORIDE
     Dosage: 1500 MG, CYCLICAL
     Route: 042
     Dates: start: 20140918
  4. GEMZAR [Suspect]
     Active Substance: GEMCITABINE HYDROCHLORIDE
     Indication: BREAST CANCER METASTATIC
     Dosage: 2400 MG, CYCLICAL
     Route: 042
     Dates: start: 20140724

REACTIONS (11)
  - Sepsis [Unknown]
  - Pruritus generalised [Unknown]
  - Neutropenia [Recovered/Resolved]
  - Inflammation [Recovering/Resolving]
  - Dyspnoea [Unknown]
  - Off label use [Unknown]
  - Emphysema [Unknown]
  - Haemoglobin decreased [Recovered/Resolved]
  - Thrombocytopenia [Recovered/Resolved]
  - Hypotension [Unknown]
  - Interstitial lung disease [Recovering/Resolving]

NARRATIVE: CASE EVENT DATE: 20140724
